FAERS Safety Report 4821041-6 (Version None)
Quarter: 2005Q4

REPORT INFORMATION
  Report Type: 
  Country: None (occurrence: None)
  Receive Date: 20051104
  Receipt Date: 20030813
  Transmission Date: 20060501
  Serious: Yes (Other)
  Sender: FDA-Public Use
  Company Number: US-AMGEN-US045009

PATIENT
  Sex: Female
  Weight: 83.5 kg

DRUGS (22)
  1. ENBREL [Suspect]
     Indication: RHEUMATOID ARTHRITIS
     Route: 058
     Dates: start: 20000301
  2. CELEBREX [Concomitant]
     Dates: start: 20000101
  3. CELEBREX [Concomitant]
     Dates: start: 20050815
  4. PREDNISONE [Concomitant]
     Dates: start: 20000101
  5. PREDNISONE [Concomitant]
     Dates: start: 20031006, end: 20031101
  6. DIOVAN [Concomitant]
  7. COLESTID [Concomitant]
     Dates: start: 20010101
  8. PRILOSEC [Concomitant]
  9. MINOCYCLINE [Concomitant]
     Dates: start: 20030701
  10. PREVACID [Concomitant]
  11. CALCIUM GLUCONATE [Concomitant]
  12. VITAMIN D [Concomitant]
  13. VITAMIN CAP [Concomitant]
  14. L-LYSINE [Concomitant]
  15. AVALIDE [Concomitant]
  16. HYDROCHLOROTHIAZIDE [Concomitant]
     Route: 048
  17. DOXYCYCLINE [Concomitant]
  18. DEPO-MEDROL [Concomitant]
     Dates: start: 20040419, end: 20050419
  19. DEPO-MEDROL [Concomitant]
     Dates: start: 20031209, end: 20031209
  20. ESTROGEN NOS [Concomitant]
     Dates: end: 20020101
  21. LIDOCAINE [Concomitant]
     Dates: start: 20050419, end: 20050419
  22. LIDOCAINE [Concomitant]
     Dates: start: 20031209, end: 20031209

REACTIONS (8)
  - ANAEMIA [None]
  - CONDITION AGGRAVATED [None]
  - ERYTHEMA NODOSUM [None]
  - LEUKOCYTOCLASTIC VASCULITIS [None]
  - NEPHROLITHIASIS [None]
  - SKIN HYPERPIGMENTATION [None]
  - SUBCUTANEOUS NODULE [None]
  - WHEEZING [None]
